FAERS Safety Report 5054932-4 (Version None)
Quarter: 2006Q3

REPORT INFORMATION
  Report Type: 
  Country: None (occurrence: None)
  Receive Date: 20060719
  Receipt Date: 20060710
  Transmission Date: 20061208
  Serious: Yes (Hospitalization)
  Sender: FDA-Public Use
  Company Number: US-AVENTIS-200615897US

PATIENT
  Sex: Female
  Weight: 58.63 kg

DRUGS (6)
  1. LANTUS [Suspect]
     Indication: DIABETES MELLITUS NON-INSULIN-DEPENDENT
     Dosage: DOSE UNIT: UNITS
     Dates: start: 20060619
  2. OPTICLIK (INSULIN INJECTION PEN) [Suspect]
     Indication: DIABETES MELLITUS NON-INSULIN-DEPENDENT
  3. DEMEROL [Suspect]
     Dosage: DOSE: UNK
  4. GLUCOVANCE [Concomitant]
     Dosage: DOSE: UNK
  5. ANALGESICS [Concomitant]
     Dosage: DOSE: UNK
  6. CARDIOVASCULAR SYSTEM DRUGS [Concomitant]

REACTIONS (14)
  - BLOOD GLUCOSE INCREASED [None]
  - DEVICE FAILURE [None]
  - DIZZINESS [None]
  - DRUG DOSE OMISSION [None]
  - ERYTHEMA [None]
  - HYPERSENSITIVITY [None]
  - MALAISE [None]
  - PHARMACEUTICAL PRODUCT COMPLAINT [None]
  - POSTOPERATIVE WOUND COMPLICATION [None]
  - SKIN DISORDER [None]
  - SYNCOPE [None]
  - VISUAL DISTURBANCE [None]
  - WEIGHT DECREASED [None]
  - WOUND DEHISCENCE [None]
